FAERS Safety Report 18393365 (Version 3)
Quarter: 2020Q4

REPORT INFORMATION
  Report Type: Report from Study
  Country: TW (occurrence: TW)
  Receive Date: 20201016
  Receipt Date: 20201130
  Transmission Date: 20210114
  Serious: Yes (Death, Other)
  Sender: FDA-Public Use
  Company Number: TW-BRISTOL-MYERS SQUIBB COMPANY-BMS-2020-085874

PATIENT
  Age: 76 Year
  Sex: Female
  Weight: 53.3 kg

DRUGS (3)
  1. TEGAFUR,GIMERACIL,OTERACIL POTASSIUM [Suspect]
     Active Substance: GIMERACIL\OTERACIL\TEGAFUR
     Indication: BILE DUCT CANCER
     Dosage: 160 MILLIGRAM, Q2WK
     Route: 048
     Dates: start: 20191230, end: 20201009
  2. NIVOLUMAB [Suspect]
     Active Substance: NIVOLUMAB
     Indication: BILE DUCT CANCER
     Dosage: 240 MILLIGRAM, Q2WK
     Route: 041
     Dates: start: 20191230, end: 20201007
  3. GEMCITABINE. [Suspect]
     Active Substance: GEMCITABINE
     Indication: BILE DUCT CANCER
     Dosage: 596 MILLIGRAM, Q2WK
     Route: 041
     Dates: start: 20191230, end: 20201007

REACTIONS (1)
  - Death [Fatal]

NARRATIVE: CASE EVENT DATE: 20201009
